FAERS Safety Report 19889342 (Version 3)
Quarter: 2021Q4

REPORT INFORMATION
  Report Type: Report from Study
  Country: CN (occurrence: CN)
  Receive Date: 20210927
  Receipt Date: 20211018
  Transmission Date: 20220303
  Serious: Yes (Death)
  Sender: FDA-Public Use
  Company Number: CN-PFIZER INC-202101254535

PATIENT
  Age: 21 Year
  Sex: Female
  Weight: 39 kg

DRUGS (15)
  1. CISPLATIN [Suspect]
     Active Substance: CISPLATIN
     Indication: Osteosarcoma
     Dosage: 170 MG
     Dates: start: 20210409, end: 20210409
  2. CISPLATIN [Suspect]
     Active Substance: CISPLATIN
     Dosage: UNK
     Dates: start: 20210528, end: 20210528
  3. CISPLATIN [Suspect]
     Active Substance: CISPLATIN
     Dosage: 140 MG
     Dates: start: 20210809, end: 20210809
  4. METHOTREXATE [Suspect]
     Active Substance: METHOTREXATE
     Indication: Osteosarcoma
     Dosage: 14000 MG
     Dates: start: 20210427, end: 20210427
  5. METHOTREXATE [Suspect]
     Active Substance: METHOTREXATE
     Dosage: 14000 MG
     Dates: start: 20210714, end: 20210714
  6. ADRIAMYCIN [Suspect]
     Active Substance: DOXORUBICIN HYDROCHLORIDE
     Indication: Osteosarcoma
     Dosage: 60 MG (DUOMEISHU)
     Dates: start: 20210409, end: 20210409
  7. ADRIAMYCIN [Suspect]
     Active Substance: DOXORUBICIN HYDROCHLORIDE
     Dosage: UNK
     Dates: start: 20210528, end: 20210528
  8. ADRIAMYCIN [Suspect]
     Active Substance: DOXORUBICIN HYDROCHLORIDE
     Dosage: 60 MG
     Dates: start: 20210809, end: 20210809
  9. CAMRELIZUMAB [Suspect]
     Active Substance: CAMRELIZUMAB
     Indication: Osteosarcoma
     Dosage: 200 MG (PD 1)
     Dates: start: 20210409, end: 20210409
  10. CAMRELIZUMAB [Suspect]
     Active Substance: CAMRELIZUMAB
     Dosage: 200 MG
     Dates: start: 20210427, end: 20210427
  11. CAMRELIZUMAB [Suspect]
     Active Substance: CAMRELIZUMAB
     Dosage: 200 MG
     Dates: start: 20210521, end: 20210521
  12. CAMRELIZUMAB [Suspect]
     Active Substance: CAMRELIZUMAB
     Dosage: 200 MG
     Dates: start: 20210714, end: 20210714
  13. CAMRELIZUMAB [Suspect]
     Active Substance: CAMRELIZUMAB
     Dosage: 200 MG
     Dates: start: 20210831, end: 20210831
  14. IFOSFAMIDE [Suspect]
     Active Substance: IFOSFAMIDE
     Indication: Osteosarcoma
     Dosage: 4 G
     Dates: start: 20210508, end: 20210508
  15. IFOSFAMIDE [Suspect]
     Active Substance: IFOSFAMIDE
     Dosage: 4 G
     Dates: start: 20210831, end: 20210831

REACTIONS (1)
  - Myelosuppression [Fatal]

NARRATIVE: CASE EVENT DATE: 20210914
